FAERS Safety Report 17418260 (Version 2)
Quarter: 2020Q2

REPORT INFORMATION
  Report Type: Report from Study
  Country: US (occurrence: US)
  Receive Date: 20200214
  Receipt Date: 20200402
  Transmission Date: 20200713
  Serious: Yes (Death)
  Sender: FDA-Public Use
  Company Number: US-TAIHO ONCOLOGY  INC-EU-2020-00401

PATIENT
  Age: 57 Year
  Sex: Male
  Weight: 54.93 kg

DRUGS (16)
  1. TEMAZEPAM. [Concomitant]
     Active Substance: TEMAZEPAM
  2. SERTRALINE [Concomitant]
     Active Substance: SERTRALINE HYDROCHLORIDE
  3. CLONAZEPAM. [Concomitant]
     Active Substance: CLONAZEPAM
  4. SUCRALFATE. [Concomitant]
     Active Substance: SUCRALFATE
  5. DICLOFENAC [Concomitant]
     Active Substance: DICLOFENAC
  6. DIPHENOXYLATE/ATROPINE [Concomitant]
     Active Substance: ATROPINE\DIPHENOXYLATE
  7. SPIRONOLACTONE. [Concomitant]
     Active Substance: SPIRONOLACTONE
  8. ANUSOL-HC [Concomitant]
     Active Substance: HYDROCORTISONE
  9. OLOPATADINE. [Concomitant]
     Active Substance: OLOPATADINE
  10. LONSURF [Suspect]
     Active Substance: TIPIRACIL HYDROCHLORIDE\TRIFLURIDINE
     Indication: RECTOSIGMOID CANCER
     Dosage: CYCLE 3, 15 MG TABLET AND 40 MG TABLET: 55 MG, TWICE DAILY
     Route: 048
     Dates: start: 20191022
  11. CAPECITABINE. [Concomitant]
     Active Substance: CAPECITABINE
  12. HYDROXYZINE [Concomitant]
     Active Substance: HYDROXYZINE HYDROCHLORIDE
  13. AMLODIPINE [Concomitant]
     Active Substance: AMLODIPINE BESYLATE
  14. ONDANSETRON [Concomitant]
     Active Substance: ONDANSETRON
  15. SENOKOT [Concomitant]
     Active Substance: SENNOSIDES
  16. FUROSEMIDE. [Concomitant]
     Active Substance: FUROSEMIDE

REACTIONS (1)
  - Disease progression [Fatal]

NARRATIVE: CASE EVENT DATE: 20200203
